FAERS Safety Report 6149007-7 (Version None)
Quarter: 2009Q2

REPORT INFORMATION
  Report Type: 
  Country: None (occurrence: None)
  Receive Date: 20090407
  Receipt Date: 20090326
  Transmission Date: 20091009
  Serious: Yes (Death, Hospitalization)
  Sender: FDA-Public Use
  Company Number: GXKR2009US03935

PATIENT
  Age: 59 Year
  Sex: Male

DRUGS (3)
  1. PREDNISONE [Suspect]
     Dosage: 20 MG, DAY ; 40 MG, DAY
  2. NAFCILLIN (NGX)(NAFCILLIN) [Suspect]
  3. VANCOMYCIN [Suspect]

REACTIONS (10)
  - ARTHRITIS BACTERIAL [None]
  - BLOOD PRESSURE DECREASED [None]
  - DISSEMINATED INTRAVASCULAR COAGULATION [None]
  - ESCHERICHIA INFECTION [None]
  - MENTAL STATUS CHANGES [None]
  - PAIN [None]
  - PATHOGEN RESISTANCE [None]
  - STAPHYLOCOCCAL BACTERAEMIA [None]
  - TACHYCARDIA [None]
  - WHITE BLOOD CELL COUNT DECREASED [None]
